FAERS Safety Report 9464785 (Version 1)
Quarter: 2013Q3

REPORT INFORMATION
  Report Type: Spontaneous
  Country: DK (occurrence: DK)
  Receive Date: 20130819
  Receipt Date: 20130819
  Transmission Date: 20140515
  Serious: Yes (Hospitalization)
  Sender: FDA-Public Use
  Company Number: DK-GLAXOSMITHKLINE-B0915405A

PATIENT
  Age: 31 Year
  Sex: Male

DRUGS (3)
  1. ZINACEF [Suspect]
     Indication: INFECTION PROPHYLAXIS
     Dosage: 1500MG PER DAY
     Route: 042
     Dates: start: 20130513
  2. IBUMETIN [Suspect]
     Indication: POSTOPERATIVE ANALGESIA
     Dosage: 400MG THREE TIMES PER DAY
     Route: 048
     Dates: start: 20130513
  3. PAMOL [Suspect]
     Indication: POSTOPERATIVE ANALGESIA
     Route: 048
     Dates: start: 20130513

REACTIONS (3)
  - Hypersensitivity [Recovered/Resolved]
  - Rash pruritic [Recovered/Resolved]
  - Nausea [Recovered/Resolved]
